FAERS Safety Report 8068035-8 (Version None)
Quarter: 2012Q1

REPORT INFORMATION
  Report Type: 
  Country: None (occurrence: None)
  Receive Date: 20120124
  Receipt Date: 20110912
  Transmission Date: 20120608
  Serious: No
  Sender: FDA-Public Use
  Company Number: US-AMGEN-USASP2011046678

PATIENT
  Age: 90 Year
  Sex: Female

DRUGS (16)
  1. HYDROCHLOROTHIAZIDE [Concomitant]
     Dosage: 1 UNK, QD
  2. CALTRATE D [Concomitant]
     Dosage: 2 UNK, QD
  3. VITAMIN B-12 [Concomitant]
     Dosage: 1 UNK, QD
  4. GARLIC CAPSULES [Concomitant]
     Dosage: 2 UNK, QD
  5. VITAMIN D [Concomitant]
     Dosage: 3 IU, QD
  6. IRON [Concomitant]
     Dosage: 1 UNK, QD
  7. ASCORBIC ACID [Concomitant]
  8. AMLODIPINE [Concomitant]
     Dosage: 1 UNK, QD
  9. OCUVITE                            /01053801/ [Concomitant]
     Dosage: 2 UNK, QD
  10. PROLIA [Suspect]
     Indication: OSTEOPOROSIS POSTMENOPAUSAL
     Dosage: 60 MG, Q6MO
     Dates: start: 20101101
  11. FISH OIL [Concomitant]
     Dosage: 2 UNK, QD
  12. LISINOPRIL [Concomitant]
     Dosage: 2 UNK, QD
  13. VITAMIN E [Concomitant]
     Dosage: 1 IU, QD
  14. ASPIRIN [Concomitant]
     Dosage: 1 UNK, QD
  15. FOCUS FACTOR [Concomitant]
     Dosage: 2 UNK, QD
  16. KLOR-CON [Concomitant]
     Dosage: 3 UNK, QD

REACTIONS (1)
  - PRURITUS [None]
